FAERS Safety Report 15901679 (Version 1)
Quarter: 2019Q1

REPORT INFORMATION
  Report Type: Report from Study
  Country: US (occurrence: US)
  Receive Date: 20190201
  Receipt Date: 20190201
  Transmission Date: 20190417
  Serious: Yes (Other)
  Sender: FDA-Public Use
  Company Number: US-TEVA-2019-US-1004243

PATIENT
  Sex: Male

DRUGS (2)
  1. CLOZAPINE UNKNOWN [Suspect]
     Active Substance: CLOZAPINE
     Route: 065
  2. ABILIFY [Concomitant]
     Active Substance: ARIPIPRAZOLE

REACTIONS (3)
  - Agranulocytosis [Unknown]
  - White blood cell count abnormal [Unknown]
  - Intentional product misuse [Unknown]
